FAERS Safety Report 10233668 (Version 2)
Quarter: 2014Q3

REPORT INFORMATION
  Report Type: Spontaneous
  Country: US (occurrence: US)
  Receive Date: 20140612
  Receipt Date: 20140731
  Transmission Date: 20150326
  Serious: No
  Sender: FDA-Public Use
  Company Number: US-PFIZER INC-2014157451

PATIENT
  Age: 70 Year
  Sex: Female
  Weight: 65.31 kg

DRUGS (2)
  1. ADVIL [Suspect]
     Active Substance: IBUPROFEN
     Indication: HEADACHE
     Dosage: UNK, AS NEEDED
     Route: 048
  2. ADVIL [Suspect]
     Active Substance: IBUPROFEN
     Dosage: TWO TABLETS, UNK
     Route: 048
     Dates: end: 201405

REACTIONS (4)
  - Drug ineffective [Unknown]
  - Poor quality drug administered [Unknown]
  - Product odour abnormal [Unknown]
  - Product taste abnormal [Unknown]
